FAERS Safety Report 7436364-4 (Version None)
Quarter: 2011Q2

REPORT INFORMATION
  Report Type: 
  Country: None (occurrence: None)
  Receive Date: 20110426
  Receipt Date: 20110418
  Transmission Date: 20111010
  Serious: No
  Sender: FDA-Public Use
  Company Number: US-BIOGENIDEC-2011BI001371

PATIENT
  Age: 52 Year
  Sex: Female

DRUGS (1)
  1. TYSABRI [Suspect]
     Indication: MULTIPLE SCLEROSIS
     Route: 042
     Dates: start: 20080122

REACTIONS (9)
  - NECK PAIN [None]
  - HIP FRACTURE [None]
  - FALL [None]
  - MORTON'S NEUROMA [None]
  - MUSCULAR WEAKNESS [None]
  - MUSCLE SPASMS [None]
  - FRACTURED ISCHIUM [None]
  - MUSCLE STRAIN [None]
  - PAIN IN EXTREMITY [None]
